FAERS Safety Report 9305074 (Version 1)
Quarter: 2013Q2

REPORT INFORMATION
  Report Type: Spontaneous
  Country: US (occurrence: None)
  Receive Date: 20130522
  Receipt Date: 20130522
  Transmission Date: 20140414
  Serious: Yes (Hospitalization)
  Sender: FDA-Public Use
  Company Number: None

PATIENT
  Age: 65 Year
  Sex: Male
  Weight: 67.59 kg

DRUGS (7)
  1. DALIRESP [Suspect]
     Indication: CHRONIC OBSTRUCTIVE PULMONARY DISEASE
     Dates: start: 20130318, end: 20130512
  2. SPIRIVA ED [Concomitant]
  3. ADVAIR [Concomitant]
  4. METFORMIN [Concomitant]
  5. KCL [Concomitant]
  6. VENTOHYNFAPEN [Concomitant]
  7. PREDRISONE [Concomitant]

REACTIONS (2)
  - Hypotension [None]
  - Orthostatic hypotension [None]
